FAERS Safety Report 5595085-3 (Version None)
Quarter: 2008Q1

REPORT INFORMATION
  Report Type: 
  Country: None (occurrence: None)
  Receive Date: 20080117
  Receipt Date: 20080110
  Transmission Date: 20080703
  Serious: Yes (Hospitalization)
  Sender: FDA-Public Use
  Company Number: ES-SANOFI-SYNTHELABO-F01200800057

PATIENT
  Age: 64 Year
  Sex: Male

DRUGS (5)
  1. NEOSIDANTOINE [Concomitant]
     Indication: EPILEPSY
     Dosage: UNK
  2. CAPECITABINE [Suspect]
     Dosage: UNK
     Route: 048
     Dates: start: 20071112, end: 20071217
  3. FLUOROURACIL [Suspect]
     Dosage: UNK
     Route: 042
  4. REDUTONA [Concomitant]
     Indication: EPILEPSY
     Dosage: UNK
  5. ELOXATIN [Suspect]
     Indication: RECTAL CANCER
     Dosage: UNK
     Route: 042

REACTIONS (1)
  - DRUG TOXICITY [None]
